FAERS Safety Report 6559674-1 (Version None)
Quarter: 2010Q1

REPORT INFORMATION
  Report Type: 
  Country: None (occurrence: None)
  Receive Date: 20100129
  Receipt Date: 20090909
  Transmission Date: 20100710
  Serious: No
  Sender: FDA-Public Use
  Company Number: US-ABBOTT-09P-163-0596206-00

PATIENT
  Sex: Male
  Weight: 83.99 kg

DRUGS (9)
  1. HUMIRA [Suspect]
     Indication: RHEUMATOID ARTHRITIS
     Dates: start: 20090717
  2. KLONOPIN [Concomitant]
     Indication: INSOMNIA
  3. INVEGA [Concomitant]
     Indication: ANXIETY
  4. INVEGA [Concomitant]
     Indication: NERVOUSNESS
  5. INVEGA [Concomitant]
     Indication: SUICIDAL IDEATION
  6. PEXEVA [Concomitant]
     Indication: ANXIETY
  7. PEXEVA [Concomitant]
     Indication: NERVOUSNESS
  8. PEXEVA [Concomitant]
     Indication: SUICIDAL IDEATION
  9. SULFAZINE [Concomitant]
     Indication: DRUG USE FOR UNKNOWN INDICATION

REACTIONS (8)
  - DIZZINESS [None]
  - FATIGUE [None]
  - INAPPROPRIATE SCHEDULE OF DRUG ADMINISTRATION [None]
  - INJECTION SITE ERYTHEMA [None]
  - INJECTION SITE SWELLING [None]
  - MUSCULAR WEAKNESS [None]
  - NASAL CONGESTION [None]
  - NASOPHARYNGITIS [None]
